FAERS Safety Report 5274710-0 (Version None)
Quarter: 2007Q1

REPORT INFORMATION
  Report Type: 
  Country: None (occurrence: None)
  Receive Date: 20070320
  Receipt Date: 20070302
  Transmission Date: 20070707
  Serious: Yes (Hospitalization)
  Sender: FDA-Public Use
  Company Number: VNL_0362_2007

PATIENT
  Age: 75 Year
  Sex: Female
  Weight: 83.9154 kg

DRUGS (18)
  1. APOKYN [Suspect]
     Indication: PARKINSON'S DISEASE
     Dosage: 0.2 ML 3X/DAY SC
     Route: 058
     Dates: start: 20060927, end: 20061001
  2. APOKYN [Suspect]
     Indication: PARKINSON'S DISEASE
     Dosage: 0.3 ML 3X/DAY SC
     Route: 058
     Dates: start: 20061001, end: 20061201
  3. APOKYN [Suspect]
     Indication: PARKINSON'S DISEASE
     Dosage: 0.4 ML 4 TIMES A DAY SC
     Route: 058
     Dates: start: 20061201
  4. MACRODANTIN [Concomitant]
  5. SINEMET [Concomitant]
  6. MIRAPEX [Concomitant]
  7. NEURONTIN [Concomitant]
  8. PRAVACHOL [Concomitant]
  9. GLIPIZIDE [Concomitant]
  10. ATENOLOL [Concomitant]
  11. METFORMIN [Concomitant]
  12. ISORBIDE [Concomitant]
  13. DIOVAN [Concomitant]
  14. BETHANECHOL [Concomitant]
  15. TIGAN [Concomitant]
  16. TASMAR [Concomitant]
  17. IRON [Concomitant]
  18. LANTUS [Concomitant]

REACTIONS (4)
  - DYSSTASIA [None]
  - INTERVERTEBRAL DISC PROTRUSION [None]
  - LIMB DISCOMFORT [None]
  - URINARY TRACT INFECTION [None]
